FAERS Safety Report 11268075 (Version 2)
Quarter: 2015Q3

REPORT INFORMATION
  Report Type: Spontaneous
  Country: FR (occurrence: FR)
  Receive Date: 20150714
  Receipt Date: 20150727
  Transmission Date: 20151125
  Serious: Yes (Other)
  Sender: FDA-Public Use
  Company Number: FR-ROCHE-1607430

PATIENT
  Sex: Female

DRUGS (7)
  1. LUCENTIS [Suspect]
     Active Substance: RANIBIZUMAB
     Indication: PRODUCT USED FOR UNKNOWN INDICATION
     Dosage: SECOND DOSE: 03/MAY/2015, THIRD DOSE: 07/JUL/2015
     Route: 050
     Dates: start: 20150410
  2. FUROSEMIDE. [Concomitant]
     Active Substance: FUROSEMIDE
  3. IRBESARTAN. [Concomitant]
     Active Substance: IRBESARTAN
  4. INDAPAMIDE. [Concomitant]
     Active Substance: INDAPAMIDE
  5. LUCENTIS [Suspect]
     Active Substance: RANIBIZUMAB
     Route: 050
     Dates: start: 20150503
  6. LUCENTIS [Suspect]
     Active Substance: RANIBIZUMAB
     Route: 050
     Dates: start: 20150703
  7. MANIDIPINE [Concomitant]
     Active Substance: MANIDIPINE

REACTIONS (1)
  - Pyelonephritis [Unknown]
